FAERS Safety Report 24921295 (Version 2)
Quarter: 2025Q1

REPORT INFORMATION
  Report Type: Spontaneous
  Country: PT (occurrence: PT)
  Receive Date: 20250204
  Receipt Date: 20250326
  Transmission Date: 20250409
  Serious: Yes (Disabling)
  Sender: SANDOZ
  Company Number: None

PATIENT
  Age: 30 Year
  Sex: Female
  Weight: 64 kg

DRUGS (1)
  1. ACETAMINOPHEN [Suspect]
     Active Substance: ACETAMINOPHEN
     Indication: Pyrexia
     Route: 048
     Dates: start: 20250113, end: 20250113

REACTIONS (6)
  - Hypoaesthesia [Recovered/Resolved]
  - Musculoskeletal stiffness [Recovered/Resolved]
  - Undersensing [Recovered/Resolved]
  - Hypoaesthesia oral [Recovered/Resolved]
  - Eye oedema [Recovered/Resolved]
  - Eyelid rash [Recovered/Resolved]

NARRATIVE: CASE EVENT DATE: 20250113
